FAERS Safety Report 5751261-8 (Version None)
Quarter: 2008Q2

REPORT INFORMATION
  Report Type: 
  Country: None (occurrence: None)
  Receive Date: 20080528
  Receipt Date: 20080516
  Transmission Date: 20081010
  Serious: Yes (Hospitalization)
  Sender: FDA-Public Use
  Company Number: DE-PFIZER INC-2006045210

PATIENT
  Sex: Male
  Weight: 90 kg

DRUGS (10)
  1. SU-011,248 [Suspect]
     Indication: METASTATIC RENAL CELL CARCINOMA
     Route: 048
     Dates: start: 20060308, end: 20060327
  2. CYNT [Concomitant]
     Route: 048
  3. LISINOPRIL AND HYDROCHLOROTHIAZIDE [Concomitant]
     Route: 048
  4. NORVASC [Concomitant]
     Route: 048
  5. METOPROLOL TARTRATE [Concomitant]
     Route: 048
  6. ALLOPURINOL [Concomitant]
     Route: 048
  7. FERRO SANOL [Concomitant]
     Route: 048
  8. SELENIUM [Concomitant]
     Route: 048
  9. VITAMIN B COMPLEX CAP [Concomitant]
     Route: 048
  10. CIPROFLOXACIN HCL [Concomitant]
     Route: 048

REACTIONS (4)
  - CIRCULATORY COLLAPSE [None]
  - GENERAL PHYSICAL HEALTH DETERIORATION [None]
  - JAUNDICE [None]
  - PYREXIA [None]
